FAERS Safety Report 23219355 (Version 2)
Quarter: 2024Q1

REPORT INFORMATION
  Report Type: Report from Study
  Country: CA (occurrence: CA)
  Receive Date: 20231122
  Receipt Date: 20240223
  Transmission Date: 20240410
  Serious: Yes (Hospitalization, Other)
  Sender: FDA-Public Use
  Company Number: CA-VER-202300477

PATIENT
  Age: 73 Year
  Sex: Male

DRUGS (4)
  1. TRIPTORELIN PAMOATE [Suspect]
     Active Substance: TRIPTORELIN PAMOATE
     Indication: Prostate cancer
     Dosage: (11.25 MG,3 M)
     Route: 030
     Dates: start: 20230509, end: 20230509
  2. TRIPTORELIN PAMOATE [Suspect]
     Active Substance: TRIPTORELIN PAMOATE
     Indication: Prostate cancer
     Dosage: (11.25 MG,3 M)
     Route: 030
     Dates: start: 20230801, end: 20230801
  3. TRIPTORELIN PAMOATE [Suspect]
     Active Substance: TRIPTORELIN PAMOATE
     Indication: Prostate cancer
     Dosage: (11.25 MG,3 M)
     Route: 030
     Dates: start: 20231101, end: 20231101
  4. TRIPTORELIN PAMOATE [Suspect]
     Active Substance: TRIPTORELIN PAMOATE
     Indication: Prostate cancer
     Route: 030
     Dates: start: 20240124, end: 20240124

REACTIONS (8)
  - Spinal fracture [Recovered/Resolved]
  - Angioplasty [Recovered/Resolved]
  - Cataract [Recovering/Resolving]
  - Oedema peripheral [Recovered/Resolved]
  - Fall [Recovered/Resolved]
  - Erythema [Recovered/Resolved]
  - Inappropriate schedule of product administration [Recovered/Resolved]
  - Limb discomfort [Recovered/Resolved]

NARRATIVE: CASE EVENT DATE: 20230509
